FAERS Safety Report 5510409-0 (Version None)
Quarter: 2007Q4

REPORT INFORMATION
  Report Type: 
  Country: None (occurrence: None)
  Receive Date: 20071108
  Receipt Date: 20071030
  Transmission Date: 20080405
  Serious: Yes (Hospitalization)
  Sender: FDA-Public Use
  Company Number: FR-PFIZER INC-2007081234

PATIENT
  Sex: Female

DRUGS (4)
  1. GENOTONORM [Suspect]
     Indication: PRADER-WILLI SYNDROME
     Route: 058
  2. ESTREVA [Concomitant]
     Dosage: FREQ:1.5 TAB/WEEKLY
     Route: 048
  3. ESTREVA [Concomitant]
     Dosage: FREQ:1.5 TAB/WEEKLY
     Route: 048
  4. PIRACETAM [Concomitant]

REACTIONS (1)
  - TERATOMA [None]
